APPROVED DRUG PRODUCT: AMOXICILLIN AND CLAVULANATE POTASSIUM
Active Ingredient: AMOXICILLIN; CLAVULANATE POTASSIUM
Strength: 400MG/5ML;EQ 57MG BASE/5ML
Dosage Form/Route: FOR SUSPENSION;ORAL
Application: A201090 | Product #002 | TE Code: AB
Applicant: AUROBINDO PHARMA LTD
Approved: Dec 20, 2011 | RLD: No | RS: No | Type: RX